FAERS Safety Report 18223618 (Version 1)
Quarter: 2020Q3

REPORT INFORMATION
  Report Type: Spontaneous
  Country: CO (occurrence: CO)
  Receive Date: 20200902
  Receipt Date: 20200902
  Transmission Date: 20201103
  Serious: Yes (Life-Threatening, Hospitalization, Other)
  Sender: FDA-Public Use
  Company Number: CO-LUPIN PHARMACEUTICALS INC.-2020-05302

PATIENT
  Age: 17 Year
  Sex: Female

DRUGS (13)
  1. AMLODIPINE [Suspect]
     Active Substance: AMLODIPINE BESYLATE
     Indication: PRODUCT USED FOR UNKNOWN INDICATION
     Dosage: UNK (SEVERAL EMPTY BLISTERS WERE FOUNDS, BUT AMOUNT OF INGESTED DRUGS WAS UNKNOWN)
     Route: 048
  2. PRAZOSIN. [Suspect]
     Active Substance: PRAZOSIN
     Indication: PRODUCT USED FOR UNKNOWN INDICATION
     Dosage: UNK SEVERAL EMPTY BLISTERS WERE FOUNDS, BUT AMOUNT OF INGESTED DRUGS WAS UNKNOWN
     Route: 048
  3. NITROFURANTOIN. [Suspect]
     Active Substance: NITROFURANTOIN
     Indication: PRODUCT USED FOR UNKNOWN INDICATION
     Dosage: UNK (SEVERAL EMPTY BLISTERS WERE FOUNDS, BUT AMOUNT OF INGESTED DRUGS WAS UNKNOWN)
     Route: 048
  4. LOSARTAN. [Suspect]
     Active Substance: LOSARTAN
     Indication: PRODUCT USED FOR UNKNOWN INDICATION
     Dosage: UNK (SEVERAL EMPTY BLISTERS WERE FOUNDS, BUT AMOUNT OF INGESTED DRUGS WAS UNKNOWN)
     Route: 048
  5. FLUOXETINE [Suspect]
     Active Substance: FLUOXETINE HYDROCHLORIDE
     Indication: PRODUCT USED FOR UNKNOWN INDICATION
     Dosage: UNK (SEVERAL EMPTY BLISTERS WERE FOUNDS, BUT AMOUNT OF INGESTED DRUGS WAS UNKNOWN)
     Route: 048
  6. NOREPINEPHRINE. [Suspect]
     Active Substance: NOREPINEPHRINE
     Indication: CARDIOGENIC SHOCK
     Dosage: UNK
     Route: 065
  7. CALCIUM ACETATE. [Suspect]
     Active Substance: CALCIUM ACETATE
     Indication: TOXICITY TO VARIOUS AGENTS
  8. METOPROLOL. [Suspect]
     Active Substance: METOPROLOL
     Indication: PRODUCT USED FOR UNKNOWN INDICATION
     Dosage: UNK (SEVERAL EMPTY BLISTERS WERE FOUNDS, BUT AMOUNT OF INGESTED DRUGS WAS UNKNOWN)
     Route: 048
  9. GLUCAGON. [Concomitant]
     Active Substance: GLUCAGON
     Indication: TOXICITY TO VARIOUS AGENTS
     Dosage: UNK 10  MILLIGRAM
     Route: 042
  10. GLUCAGON. [Concomitant]
     Active Substance: GLUCAGON
     Dosage: UNK
     Route: 042
  11. CALCIUM ACETATE. [Suspect]
     Active Substance: CALCIUM ACETATE
     Indication: CARDIOGENIC SHOCK
     Dosage: UNK
     Route: 042
  12. NOREPINEPHRINE. [Suspect]
     Active Substance: NOREPINEPHRINE
     Indication: TOXICITY TO VARIOUS AGENTS
  13. VERAPAMIL [Suspect]
     Active Substance: VERAPAMIL HYDROCHLORIDE
     Indication: PRODUCT USED FOR UNKNOWN INDICATION
     Dosage: UNK (SEVERAL EMPTY BLISTERS WERE FOUNDS, BUT AMOUNT OF INGESTED DRUGS WAS UNKNOWN)
     Route: 048

REACTIONS (10)
  - Intentional overdose [Unknown]
  - Haemodynamic instability [Recovered/Resolved]
  - Drug ineffective [Unknown]
  - Bradycardia [Recovered/Resolved]
  - Sinus bradycardia [Recovered/Resolved]
  - Atrioventricular block first degree [Recovered/Resolved]
  - Hypotension [Recovered/Resolved]
  - Suicide attempt [Recovered/Resolved]
  - Toxicity to various agents [Recovered/Resolved]
  - Cardiogenic shock [Recovered/Resolved]
